FAERS Safety Report 13107161 (Version 2)
Quarter: 2017Q1

REPORT INFORMATION
  Report Type: Report from Study
  Country: AU (occurrence: AU)
  Receive Date: 20170112
  Receipt Date: 20170120
  Transmission Date: 20170428
  Serious: Yes (Death, Hospitalization)
  Sender: FDA-Public Use
  Company Number: AU-ROCHE-1874825

PATIENT
  Age: 62 Year
  Sex: Male

DRUGS (34)
  1. IBUPROFEN. [Concomitant]
     Active Substance: IBUPROFEN
     Indication: CHEST PAIN
     Route: 065
     Dates: start: 20161101, end: 20161101
  2. DEXAMETHASONE. [Concomitant]
     Active Substance: DEXAMETHASONE
     Route: 065
     Dates: start: 20160715, end: 20160715
  3. DEXAMETHASONE. [Concomitant]
     Active Substance: DEXAMETHASONE
     Route: 065
     Dates: start: 20160714, end: 20160714
  4. PARACETAMOL [Concomitant]
     Active Substance: ACETAMINOPHEN
     Route: 065
     Dates: start: 20160718, end: 20160718
  5. ONDANSETRON [Concomitant]
     Active Substance: ONDANSETRON
     Route: 065
     Dates: start: 20160825, end: 20160825
  6. BACTRIM DS [Concomitant]
     Active Substance: SULFAMETHOXAZOLE\TRIMETHOPRIM
     Indication: PROPHYLAXIS
     Dosage: 800/160 MG?ONE TABLET TWICE A DAY ON MONDAY AND THURSDAY
     Route: 065
     Dates: start: 20160815
  7. DEXAMETHASONE. [Concomitant]
     Active Substance: DEXAMETHASONE
     Route: 065
     Dates: start: 20160728, end: 20160728
  8. PHENERGAN [Concomitant]
     Active Substance: PROMETHAZINE HYDROCHLORIDE
     Indication: PREMEDICATION
     Route: 065
     Dates: start: 20160715, end: 20160715
  9. PHENERGAN [Concomitant]
     Active Substance: PROMETHAZINE HYDROCHLORIDE
     Route: 065
     Dates: start: 20160721, end: 20160721
  10. OBINUTUZUMAB [Suspect]
     Active Substance: OBINUTUZUMAB
     Indication: CHRONIC LYMPHOCYTIC LEUKAEMIA
     Dosage: CYCLE 1  DAY 1
     Route: 065
     Dates: start: 20160714
  11. IBUPROFEN. [Concomitant]
     Active Substance: IBUPROFEN
     Route: 065
     Dates: start: 20160802, end: 20160825
  12. DEXAMETHASONE. [Concomitant]
     Active Substance: DEXAMETHASONE
     Indication: PREMEDICATION
     Route: 065
     Dates: start: 20160721, end: 20160721
  13. PARACETAMOL [Concomitant]
     Active Substance: ACETAMINOPHEN
     Indication: PREMEDICATION
     Route: 065
     Dates: start: 20160721, end: 20160721
  14. ONDANSETRON [Concomitant]
     Active Substance: ONDANSETRON
     Indication: PREMEDICATION
     Route: 065
     Dates: start: 20160728, end: 20160728
  15. ONDANSETRON [Concomitant]
     Active Substance: ONDANSETRON
     Route: 065
     Dates: start: 20160922, end: 20160922
  16. CENOVIS [Concomitant]
     Indication: VITAMIN SUPPLEMENTATION
     Route: 065
     Dates: start: 20161202, end: 20161209
  17. ADRENALINE [Concomitant]
     Active Substance: EPINEPHRINE
     Indication: INFUSION RELATED REACTION
     Route: 065
     Dates: start: 20160714, end: 20160714
  18. PARACETAMOL [Concomitant]
     Active Substance: ACETAMINOPHEN
     Indication: HEADACHE
     Route: 065
     Dates: start: 20160714, end: 20160714
  19. PHENERGAN [Concomitant]
     Active Substance: PROMETHAZINE HYDROCHLORIDE
     Route: 065
     Dates: start: 20160908, end: 20160908
  20. ONDANSETRON [Concomitant]
     Active Substance: ONDANSETRON
     Route: 065
     Dates: start: 20161006, end: 20161006
  21. ONDANSETRON [Concomitant]
     Active Substance: ONDANSETRON
     Route: 065
     Dates: start: 20160714, end: 20160714
  22. ALLOPURINOL. [Concomitant]
     Active Substance: ALLOPURINOL
     Indication: TUMOUR LYSIS SYNDROME
     Route: 065
     Dates: start: 20160712, end: 20160724
  23. DEXAMETHASONE. [Concomitant]
     Active Substance: DEXAMETHASONE
     Indication: INFUSION RELATED REACTION
     Route: 065
     Dates: start: 20160714, end: 20160714
  24. PHENERGAN [Concomitant]
     Active Substance: PROMETHAZINE HYDROCHLORIDE
     Route: 065
     Dates: start: 20160908, end: 20160908
  25. PANTOPRAZOLE [Concomitant]
     Active Substance: PANTOPRAZOLE SODIUM
     Indication: PROPHYLAXIS
     Route: 065
     Dates: start: 20161101, end: 20161101
  26. MORPHINE [Concomitant]
     Active Substance: MORPHINE
     Indication: CHEST PAIN
     Route: 065
     Dates: start: 20160728, end: 20160728
  27. OXAZEPAM. [Concomitant]
     Active Substance: OXAZEPAM
     Indication: INSOMNIA
     Route: 065
     Dates: start: 20160715
  28. ENTECAVIR. [Concomitant]
     Active Substance: ENTECAVIR
     Indication: HEPATITIS B
     Route: 065
     Dates: start: 20160804
  29. CHLORAMBUCIL [Suspect]
     Active Substance: CHLORAMBUCIL
     Indication: CHRONIC LYMPHOCYTIC LEUKAEMIA
     Dosage: CYCLE 1 DAY 1
     Route: 065
     Dates: start: 20160714
  30. TEMAZEPAM. [Concomitant]
     Active Substance: TEMAZEPAM
     Indication: INSOMNIA
     Route: 065
     Dates: start: 20160714
  31. FISH OIL [Concomitant]
     Active Substance: FISH OIL
     Route: 065
     Dates: start: 20160810, end: 20160811
  32. AMOXIL [Concomitant]
     Active Substance: AMOXICILLIN
     Indication: UPPER RESPIRATORY TRACT INFECTION
     Route: 065
     Dates: start: 20161214, end: 20161219
  33. OBINUTUZUMAB [Suspect]
     Active Substance: OBINUTUZUMAB
     Dosage: CYCLE 6 DAY 1
     Route: 065
     Dates: start: 20161129
  34. ASPIRIN. [Concomitant]
     Active Substance: ASPIRIN
     Indication: CHEST PAIN
     Route: 065
     Dates: start: 20161101, end: 20161101

REACTIONS (1)
  - Blood bilirubin increased [Fatal]

NARRATIVE: CASE EVENT DATE: 20161229
